FAERS Safety Report 4465699-2 (Version None)
Quarter: 2004Q4

REPORT INFORMATION
  Report Type: 
  Country: None (occurrence: None)
  Receive Date: 20041004
  Receipt Date: 20040929
  Transmission Date: 20050328
  Serious: Yes (Hospitalization)
  Sender: FDA-Public Use
  Company Number: FR-MERCK-0409FRA00114

PATIENT
  Age: 82 Year
  Sex: Female

DRUGS (11)
  1. ACETAMINOPHEN AND PROPOXYPHENE HYDROCHLORIDE [Concomitant]
     Route: 065
  2. BACITRACIN AND LYSOZYME HYDROCHLORIDE AND PAPAIN [Concomitant]
     Route: 065
  3. BECLOMETHASONE DIPROPIONATE [Concomitant]
     Route: 065
  4. BROMAZEPAM [Concomitant]
     Route: 048
  5. CARBOCYSTEINE [Concomitant]
     Indication: BRONCHITIS CHRONIC
     Route: 048
  6. CELIPROLOL HYDROCHLORIDE [Concomitant]
     Route: 048
  7. FLUTICASONE PROPIONATE AND SALMETEROL XINAFOATE [Concomitant]
     Route: 055
  8. HYZAAR [Suspect]
     Indication: HYPERTENSION
     Route: 048
     Dates: end: 20040906
  9. LERCANIDIPINE HYDROCHLORIDE [Concomitant]
     Route: 065
  10. NITROGLYCERIN [Concomitant]
     Route: 065
  11. PAROXETINE HYDROCHLORIDE [Suspect]
     Indication: DEPRESSION
     Route: 048
     Dates: end: 20040906

REACTIONS (3)
  - BRONCHITIS CHRONIC [None]
  - DRUG INTERACTION [None]
  - HYPONATRAEMIA [None]
